FAERS Safety Report 10195779 (Version 1)
Quarter: 2014Q2

REPORT INFORMATION
  Report Type: Spontaneous
  Country: US (occurrence: None)
  Receive Date: 20140522
  Receipt Date: 20140522
  Transmission Date: 20141212
  Serious: Yes (Hospitalization)
  Sender: FDA-Public Use
  Company Number: UNT-2014-000164

PATIENT
  Age: 6 Year
  Sex: Female

DRUGS (3)
  1. REMODULIN [Suspect]
     Indication: COR PULMONALE CHRONIC
     Route: 041
     Dates: start: 20130124
  2. REVATIO [Concomitant]
  3. COUMADIN [Concomitant]

REACTIONS (1)
  - Rhinovirus infection [None]
